FAERS Safety Report 8593473-4 (Version None)
Quarter: 2012Q3

REPORT INFORMATION
  Report Type: 
  Country: None (occurrence: None)
  Receive Date: 20120814
  Receipt Date: 20120809
  Transmission Date: 20120928
  Serious: Yes (Hospitalization, Disabling, Other)
  Sender: FDA-Public Use
  Company Number: US-009507513-2011SP056191

PATIENT

DRUGS (4)
  1. TRAZODONE HCL [Suspect]
     Indication: SUICIDAL IDEATION
     Dates: start: 20080101, end: 20080818
  2. TRAZODONE HCL [Suspect]
     Indication: MOOD SWINGS
  3. CELEXA [Concomitant]
     Indication: PRODUCT USED FOR UNKNOWN INDICATION
     Dates: start: 20080501
  4. NUVARING [Suspect]
     Indication: CONTRACEPTION
     Dates: start: 20050501, end: 20081215

REACTIONS (12)
  - PULMONARY EMBOLISM [None]
  - STAPHYLOCOCCAL INFECTION [None]
  - RHINITIS ALLERGIC [None]
  - MOOD SWINGS [None]
  - UPPER RESPIRATORY TRACT INFECTION [None]
  - BIPOLAR DISORDER [None]
  - ABSCESS [None]
  - SUICIDAL IDEATION [None]
  - CELLULITIS [None]
  - ANXIETY [None]
  - ARTHROPOD BITE [None]
  - SOMNOLENCE [None]
